FAERS Safety Report 17053000 (Version 1)
Quarter: 2019Q4

REPORT INFORMATION
  Report Type: Spontaneous
  Country: GB (occurrence: GB)
  Receive Date: 20191120
  Receipt Date: 20191120
  Transmission Date: 20200122
  Serious: No
  Sender: FDA-Public Use
  Company Number: None

PATIENT
  Age: 55 Year
  Sex: Male
  Weight: 135 kg

DRUGS (12)
  1. BUPROPION HYDROCHLORIDE XL [Concomitant]
     Active Substance: BUPROPION HYDROCHLORIDE
  2. ASA [Concomitant]
     Active Substance: ASPIRIN
  3. LUTEIN [Concomitant]
     Active Substance: LUTEIN
  4. TADALAFIL. [Concomitant]
     Active Substance: TADALAFIL
  5. VISION ESSENCE MESO-ZEAXANTHIN [Concomitant]
  6. ZEAXANTHIN [Concomitant]
     Active Substance: ZEAXANTHIN
  7. INDAPAMIDE. [Concomitant]
     Active Substance: INDAPAMIDE
  8. ATORVASTATIN [Concomitant]
     Active Substance: ATORVASTATIN
  9. D3 1000 IU [Concomitant]
  10. CENTRUM SILVER MULTIVITAMIN [Concomitant]
  11. CIALIS [Suspect]
     Active Substance: TADALAFIL
     Indication: ERECTILE DYSFUNCTION
     Dosage: ?          QUANTITY:1 TABLET(S);?
     Route: 048
     Dates: start: 20190801, end: 20191101
  12. BISOPROLOL FUMARATE. [Concomitant]
     Active Substance: BISOPROLOL FUMARATE

REACTIONS (1)
  - Rash [None]

NARRATIVE: CASE EVENT DATE: 20191015
